APPROVED DRUG PRODUCT: KEFLEX
Active Ingredient: CEPHALEXIN
Strength: EQ 125MG BASE/5ML **Federal Register determination that product was not discontinued or withdrawn for safety or effectiveness reasons**
Dosage Form/Route: FOR SUSPENSION;ORAL
Application: N050406 | Product #001
Applicant: PRAGMA PHARMACEUTICALS LLC
Approved: Approved Prior to Jan 1, 1982 | RLD: Yes | RS: No | Type: DISCN